FAERS Safety Report 24572465 (Version 1)
Quarter: 2024Q4

REPORT INFORMATION
  Report Type: Report from Study
  Country: US (occurrence: US)
  Receive Date: 20241101
  Receipt Date: 20241101
  Transmission Date: 20250115
  Serious: Yes (Other)
  Sender: JAZZ
  Company Number: US-JAZZ PHARMACEUTICALS-2024-US-018338

PATIENT
  Sex: Female

DRUGS (23)
  1. SODIUM OXYBATE [Suspect]
     Active Substance: SODIUM OXYBATE
     Indication: Narcolepsy
     Dosage: UNK
  2. SODIUM OXYBATE [Suspect]
     Active Substance: SODIUM OXYBATE
     Indication: Cataplexy
     Dosage: 5 GRAMS FOR FIRST DOSE AND 4 GRAMS FOR SECOND DOSE
  3. SODIUM OXYBATE [Suspect]
     Active Substance: SODIUM OXYBATE
     Indication: Somnolence
     Dosage: 2ML BY MOUTH NIGHTLY, 450 MILLIGRAM, BID
     Route: 048
  4. SODIUM OXYBATE [Suspect]
     Active Substance: SODIUM OXYBATE
     Dosage: UNK
  5. TOPAMAX [Concomitant]
     Active Substance: TOPIRAMATE
     Dosage: UNK UNK, QD
     Route: 048
     Dates: start: 20160101
  6. ADVAIR HFA [Concomitant]
     Active Substance: FLUTICASONE PROPIONATE\SALMETEROL XINAFOATE
     Dosage: UNK
     Dates: start: 20090101
  7. ADVAIR HFA [Concomitant]
     Active Substance: FLUTICASONE PROPIONATE\SALMETEROL XINAFOATE
     Dosage: UNK (250-50 MICROGRAM)
  8. TRAMADOL HCL [Concomitant]
     Active Substance: TRAMADOL HYDROCHLORIDE
     Dosage: UNK
     Dates: start: 20140101
  9. CYCLOBENZAPRINE [Concomitant]
     Active Substance: CYCLOBENZAPRINE
     Dosage: UNK (AS NEEDED)
     Route: 048
     Dates: start: 20150601
  10. OSPHENA [Concomitant]
     Active Substance: OSPEMIFENE
     Dosage: UNK, QD
     Route: 048
     Dates: start: 20121201
  11. PROZAC [Concomitant]
     Active Substance: FLUOXETINE HYDROCHLORIDE
     Dosage: UNK, QD
     Route: 048
     Dates: start: 20240701
  12. LIDOCAINE [Concomitant]
     Active Substance: LIDOCAINE
     Dosage: UNK
     Dates: start: 20140101
  13. ARICEPT [Concomitant]
     Active Substance: DONEPEZIL HYDROCHLORIDE
     Dosage: UNK, QD
     Route: 048
  14. NURTEC ODT [Concomitant]
     Active Substance: RIMEGEPANT SULFATE
     Indication: Migraine
     Dosage: UNK, QD (1 TABLET FOR 24 HRS)
  15. SEROQUEL [Concomitant]
     Active Substance: QUETIAPINE FUMARATE
     Dosage: UNK, BID (1-2 TABLETS)
     Route: 048
  16. POTASSIUM CHLORIDE [Concomitant]
     Active Substance: POTASSIUM CHLORIDE
     Dosage: UNK, QD (1 PACKET)
     Route: 048
  17. FLONASE ALLERGY RELIEF [Concomitant]
     Active Substance: FLUTICASONE PROPIONATE
     Dosage: UNK, QD (1 SQUIRT IN NOSTRIL)
  18. BUSPIRONE [Concomitant]
     Active Substance: BUSPIRONE HYDROCHLORIDE
     Dosage: UNK, BID
     Route: 048
  19. IMITREX [Concomitant]
     Active Substance: SUMATRIPTAN SUCCINATE
     Indication: Headache
     Dosage: UNK, BID (1 SQUIRT IN THE NOSTRIL)
  20. ONDANSETRON [Concomitant]
     Active Substance: ONDANSETRON
     Dosage: UNK, QD (1 TABLET)
     Route: 048
  21. TRAMADOL [Concomitant]
     Active Substance: TRAMADOL
     Dosage: UNK (AS NEEDED)
     Route: 048
  22. NAPROXEN [Concomitant]
     Active Substance: NAPROXEN
     Dosage: UNK (1 TABLET AS NEEDED)
     Route: 048
  23. FIORICET [Concomitant]
     Active Substance: ACETAMINOPHEN\BUTALBITAL\CAFFEINE
     Dosage: UNK, BID

REACTIONS (5)
  - Loss of consciousness [Unknown]
  - Blood potassium decreased [Unknown]
  - Stress [Unknown]
  - Dysphonia [Unknown]
  - Product prescribing error [Unknown]
